FAERS Safety Report 14338342 (Version 1)
Quarter: 2017Q4

REPORT INFORMATION
  Report Type: Spontaneous
  Country: CN (occurrence: CN)
  Receive Date: 20171229
  Receipt Date: 20171229
  Transmission Date: 20180321
  Serious: Yes (Death, Congenital Anomaly)
  Sender: FDA-Public Use
  Company Number: CN-JNJFOC-20171232274

PATIENT

DRUGS (1)
  1. RISPERIDONE. [Suspect]
     Active Substance: RISPERIDONE
     Indication: SCHIZOPHRENIA
     Dosage: DOSE: 2-4 MG
     Route: 064

REACTIONS (4)
  - Congenital anomaly [Unknown]
  - Foetal death [Fatal]
  - Foetal exposure during pregnancy [Unknown]
  - Macrosomia [Unknown]
